FAERS Safety Report 10062247 (Version 1)
Quarter: 2014Q2

REPORT INFORMATION
  Report Type: Spontaneous
  Country: US (occurrence: None)
  Receive Date: 20140404
  Receipt Date: 20140404
  Transmission Date: 20141212
  Serious: Yes (Hospitalization)
  Sender: FDA-Public Use
  Company Number: None

PATIENT
  Age: 69 Year
  Sex: Male
  Weight: 122.3 kg

DRUGS (8)
  1. CARBOPLATIN [Suspect]
     Indication: HEAD AND NECK CANCER
     Dosage: 300 MG WEEKLY X 7
     Dates: start: 20131219, end: 20140317
  2. PIPERACILLIN [Concomitant]
  3. VANCOMYXIN [Concomitant]
  4. LEVOFLOXACIN [Concomitant]
  5. FLUCONAZOLE [Concomitant]
  6. NORMAL SALINE [Concomitant]
  7. POTASSIUM [Concomitant]
  8. MAGNESIUM SULFATE [Concomitant]

REACTIONS (4)
  - Pyrexia [None]
  - Pneumonia [None]
  - Candida infection [None]
  - Dehydration [None]
